FAERS Safety Report 9772849 (Version 1)
Quarter: 2013Q4

REPORT INFORMATION
  Report Type: Spontaneous
  Country: NL (occurrence: NL)
  Receive Date: 20131219
  Receipt Date: 20131219
  Transmission Date: 20140711
  Serious: Yes (Life-Threatening, Other)
  Sender: FDA-Public Use
  Company Number: NL-PFIZER INC-2013363152

PATIENT
  Age: 63 Year
  Sex: Female
  Weight: 61 kg

DRUGS (9)
  1. METHYLPREDNISOLONE [Suspect]
     Indication: PARANEOPLASTIC SYNDROME
     Dosage: 1000 MG, UNK
     Dates: start: 20131209
  2. DEPAKINE [Interacting]
     Indication: EPILEPSY
     Dosage: 750 MG, 2X/DAY
     Dates: start: 20130922
  3. DEPAKINE [Interacting]
     Dosage: 1000 MG, 2X/DAY
     Dates: end: 20131211
  4. INSULIN [Concomitant]
     Dosage: UNK
  5. FRAXIPARINE [Concomitant]
     Dosage: UNK
  6. MOVICOLON [Concomitant]
     Dosage: UNK
  7. FENOBARBITAL [Concomitant]
     Dosage: UNK
  8. DIPHANTOINE [Concomitant]
     Dosage: UNK
  9. FUROSEMIDE [Concomitant]
     Dosage: UNK

REACTIONS (2)
  - Hyperammonaemia [Recovering/Resolving]
  - Drug interaction [Recovered/Resolved]
